FAERS Safety Report 8106869 (Version 3)
Quarter: 2012Q4

REPORT INFORMATION
  Report Type: 
  Country: US (occurrence: US)
  Receive Date: 20110825
  Receipt Date: 20121205
  Transmission Date: 20130627
  Serious: Yes (Hospitalization)
  Sender: FDA-Public Use
  Company Number: US-BAYER-2011-075009

PATIENT
  Age: 49 Year
  Sex: Female

DRUGS (9)
  1. YAZ [Suspect]
     Indication: CONTRACEPTION
     Dosage: UNK
     Route: 048
     Dates: start: 20080121, end: 20090101
  2. SYNTHROID [Concomitant]
     Dosage: UNK
     Dates: start: 2003
  3. CLARITHROMYCIN [Concomitant]
     Dosage: 500 mg, UNK
  4. BENZONATATE [Concomitant]
     Dosage: 200 mg, UNK
  5. SERTRALINE HYDROCHLORIDE [Concomitant]
     Dosage: 100 mg, UNK
  6. CYTOMEL [Concomitant]
     Dosage: 5 ?g, UNK
  7. SINGULAIR [Concomitant]
     Dosage: 10 mg, UNK
  8. AMOX TR-K CLAV [Concomitant]
     Dosage: 875 mg-125 mg
  9. PREDNISONE [Concomitant]
     Dosage: 5 to 20 mg

REACTIONS (3)
  - Pulmonary embolism [None]
  - Deep vein thrombosis [Recovered/Resolved]
  - Injury [Recovered/Resolved]
